FAERS Safety Report 8966808 (Version 1)
Quarter: 2012Q4

REPORT INFORMATION
  Report Type: 
  Country: BR (occurrence: BR)
  Receive Date: 20121214
  Receipt Date: 20121214
  Transmission Date: 20130627
  Serious: Yes (Other)
  Sender: FDA-Public Use
  Company Number: PHHY2012BR114146

PATIENT
  Sex: Male
  Weight: .98 kg

DRUGS (2)
  1. CALCIUM SANDOZ [Suspect]
     Route: 064
  2. ACETYLSALICYLIC ACID [Suspect]
     Route: 064

REACTIONS (5)
  - Low birth weight baby [Unknown]
  - Foetal exposure during pregnancy [Unknown]
  - Caesarean section [None]
  - Maternal drugs affecting foetus [None]
  - Premature baby [None]
